FAERS Safety Report 10949435 (Version 1)
Quarter: 2015Q1

REPORT INFORMATION
  Report Type: Spontaneous
  Country: US (occurrence: US)
  Receive Date: 20150324
  Receipt Date: 20150324
  Transmission Date: 20150721
  Serious: Yes (Hospitalization)
  Sender: FDA-Public Use
  Company Number: US-PFIZER INC-2015099195

PATIENT
  Age: 23 Year
  Sex: Female
  Weight: 72 kg

DRUGS (1)
  1. VFEND [Suspect]
     Active Substance: VORICONAZOLE
     Indication: PROPHYLAXIS
     Dosage: 200 MG, 2X/DAY
     Dates: start: 201403

REACTIONS (2)
  - Leukaemia recurrent [Unknown]
  - Acute monocytic leukaemia [Unknown]
